FAERS Safety Report 9941788 (Version 1)
Quarter: 2014Q1

REPORT INFORMATION
  Report Type: Report from Study
  Country: US (occurrence: US)
  Receive Date: 20140303
  Receipt Date: 20140303
  Transmission Date: 20141002
  Serious: No
  Sender: FDA-Public Use
  Company Number: US-ABBVIE-13P-163-1040341-00

PATIENT
  Age: 44 Year
  Sex: Male

DRUGS (1)
  1. HUMIRA [Suspect]
     Indication: PSORIATIC ARTHROPATHY
     Dates: start: 201111

REACTIONS (5)
  - Sinusitis [Not Recovered/Not Resolved]
  - Injection site pain [Not Recovered/Not Resolved]
  - Injection site reaction [Not Recovered/Not Resolved]
  - Diarrhoea [Not Recovered/Not Resolved]
  - Injection site haemorrhage [Not Recovered/Not Resolved]
